FAERS Safety Report 5688076-5 (Version None)
Quarter: 2008Q1

REPORT INFORMATION
  Report Type: 
  Country: None (occurrence: None)
  Receive Date: 20080327
  Receipt Date: 20080312
  Transmission Date: 20080703
  Serious: Yes (Hospitalization)
  Sender: FDA-Public Use
  Company Number: 2007BI007505

PATIENT
  Age: 51 Year
  Sex: Female
  Weight: 70.7611 kg

DRUGS (18)
  1. TYSABRI [Suspect]
     Indication: MULTIPLE SCLEROSIS
     Dosage: 300 MG;QM;IV
     Route: 042
     Dates: start: 20070320
  2. PLAQUENIL [Concomitant]
  3. BACLOFEN [Concomitant]
  4. LYRICA [Concomitant]
  5. ZOCOR [Concomitant]
  6. CELEXA [Concomitant]
  7. CARAFATE [Concomitant]
  8. ZANTAC [Concomitant]
  9. SYNTHROID [Concomitant]
  10. LASIX [Concomitant]
  11. OXYCODONE HCL [Concomitant]
  12. FOSAMAX [Concomitant]
  13. DURAGESIC-100 [Concomitant]
  14. VITAMIN D [Concomitant]
  15. POTASSIUM CHLORIDE [Concomitant]
  16. QUINIDINE HCL [Concomitant]
  17. ROZEREM [Concomitant]
  18. VITAMIN B COMPLEX CAP [Concomitant]

REACTIONS (7)
  - ANOREXIA [None]
  - DIARRHOEA [None]
  - LETHARGY [None]
  - MITRAL VALVE INCOMPETENCE [None]
  - PNEUMONIA [None]
  - PULMONARY OEDEMA [None]
  - UPPER RESPIRATORY TRACT INFECTION [None]
